FAERS Safety Report 9060603 (Version 9)
Quarter: 2013Q4

REPORT INFORMATION
  Report Type: Report from Study
  Country: US (occurrence: US)
  Receive Date: 20130212
  Receipt Date: 20131028
  Transmission Date: 20140711
  Serious: Yes (Hospitalization, Other)
  Sender: FDA-Public Use
  Company Number: US-ACTELION-A-US2013-78990

PATIENT
  Age: 58 Year
  Sex: Female

DRUGS (1)
  1. TRACLEER [Suspect]
     Indication: PULMONARY HYPERTENSION
     Dosage: 125 MG, BID
     Route: 048
     Dates: start: 20020423

REACTIONS (11)
  - Leg amputation [Recovering/Resolving]
  - Foot amputation [Not Recovered/Not Resolved]
  - Foot operation [Recovered/Resolved]
  - Limb discomfort [Not Recovered/Not Resolved]
  - Limb injury [Unknown]
  - Disease complication [Unknown]
  - Amputation [Recovering/Resolving]
  - Pain in extremity [Recovering/Resolving]
  - Contusion [Recovering/Resolving]
  - Angiopathy [Unknown]
  - Malaise [Unknown]
